FAERS Safety Report 20114423 (Version 3)
Quarter: 2021Q4

REPORT INFORMATION
  Report Type: Spontaneous
  Country: HU (occurrence: HU)
  Receive Date: 20211125
  Receipt Date: 20211214
  Transmission Date: 20220303
  Serious: Yes (Hospitalization, Other)
  Sender: FDA-Public Use
  Company Number: HU-BoehringerIngelheim-2021-BI-139279

PATIENT
  Sex: Male

DRUGS (2)
  1. PRADAXA [Suspect]
     Active Substance: DABIGATRAN ETEXILATE MESYLATE
     Indication: Atrial fibrillation
     Route: 065
     Dates: end: 2018
  2. PRADAXA [Suspect]
     Active Substance: DABIGATRAN ETEXILATE MESYLATE
     Route: 065
     Dates: start: 2019

REACTIONS (4)
  - Ischaemic stroke [Recovered/Resolved with Sequelae]
  - Ischaemic stroke [Unknown]
  - Atrial flutter [Recovered/Resolved]
  - Carotid arteriosclerosis [Unknown]

NARRATIVE: CASE EVENT DATE: 20180101
